FAERS Safety Report 4449122-X (Version None)
Quarter: 2004Q3

REPORT INFORMATION
  Report Type: 
  Country: None (occurrence: None)
  Receive Date: 20040910
  Receipt Date: 20040826
  Transmission Date: 20050211
  Serious: Yes (Life-Threatening, Other)
  Sender: FDA-Public Use
  Company Number: 2004213537JP

PATIENT
  Age: 79 Year
  Sex: Male
  Weight: 62 kg

DRUGS (1)
  1. SOLU-MEDROL [Suspect]
     Indication: BACK PAIN
     Dosage: 1000 MG, QD, IV
     Route: 042
     Dates: start: 20040430, end: 20040430

REACTIONS (3)
  - ANAPHYLACTIC SHOCK [None]
  - BLOOD PRESSURE IMMEASURABLE [None]
  - DEPRESSED LEVEL OF CONSCIOUSNESS [None]
